FAERS Safety Report 8348807-2 (Version None)
Quarter: 2012Q2

REPORT INFORMATION
  Report Type: 
  Country: None (occurrence: None)
  Receive Date: 20120508
  Receipt Date: 20120424
  Transmission Date: 20120825
  Serious: Yes (Death, Other)
  Sender: FDA-Public Use
  Company Number: US-2012-10483

PATIENT
  Age: 57 Year
  Sex: Female

DRUGS (6)
  1. ETOPOSIDE [Suspect]
     Indication: ACUTE MYELOID LEUKAEMIA
     Dosage: 60 MG/KG, DAILY DOSE, INTRAVENOUS
     Route: 042
  2. MYCOPHENOLATE MOFETIL [Suspect]
     Dosage: 15 MG/KG, INTRAVENOUS
     Route: 042
  3. BUSULFAN [Suspect]
     Indication: ACUTE MYELOID LEUKAEMIA
     Dosage: 1 MG/KG, EVERY 6 HOURS, INTRAVENOUS
     Route: 042
  4. CYCLOPHOSPHAMIDE [Suspect]
     Indication: ACUTE MYELOID LEUKAEMIA
     Dosage: 45 MG/KG, DAILY DOSE, INTRAVENOUS
     Route: 042
  5. SIROLIMUS (RAPAMUNE) [Suspect]
     Dosage: 12 MG MILLIGRAM(S), DAILY DOSE, ORAL; 4 MG MILLIGRAM(S), ORAL
     Route: 048
  6. SOLUMEDROL(METHYLPREDNISILONE SODIUM SUCCINATE) [Concomitant]

REACTIONS (6)
  - VENOOCCLUSIVE LIVER DISEASE [None]
  - PORTAL VEIN THROMBOSIS [None]
  - MENTAL STATUS CHANGES [None]
  - IMPAIRED HEALING [None]
  - ACUTE MYELOID LEUKAEMIA RECURRENT [None]
  - ACUTE GRAFT VERSUS HOST DISEASE [None]
